FAERS Safety Report 14065824 (Version 1)
Quarter: 2017Q4

REPORT INFORMATION
  Report Type: Spontaneous
  Country: US (occurrence: None)
  Receive Date: 20171006
  Receipt Date: 20171006
  Transmission Date: 20180321
  Serious: No
  Sender: FDA-Public Use
  Company Number: None

PATIENT
  Sex: Female
  Weight: 46.72 kg

DRUGS (2)
  1. FORTEO [Suspect]
     Active Substance: TERIPARATIDE
     Indication: OSTEOPOROSIS
     Route: 058
     Dates: start: 201702
  2. FORTEO [Suspect]
     Active Substance: TERIPARATIDE
     Indication: SPINAL COMPRESSION FRACTURE
     Route: 058
     Dates: start: 201702

REACTIONS (11)
  - Acne [None]
  - Pain in extremity [None]
  - Vision blurred [None]
  - Confusional state [None]
  - Hair growth abnormal [None]
  - Skin papilloma [None]
  - Alopecia [None]
  - Cough [None]
  - Headache [None]
  - Therapy cessation [None]
  - Fatigue [None]
